FAERS Safety Report 11544557 (Version 1)
Quarter: 2015Q3

REPORT INFORMATION
  Report Type: Spontaneous
  Country: US (occurrence: US)
  Receive Date: 20150924
  Receipt Date: 20150924
  Transmission Date: 20151125
  Serious: Yes (Other)
  Sender: FDA-Public Use
  Company Number: PHEH2015US018390

PATIENT
  Sex: Female

DRUGS (2)
  1. FEMARA [Suspect]
     Active Substance: LETROZOLE
     Indication: PRODUCT USED FOR UNKNOWN INDICATION
     Dosage: 2.5 MG, UNK
     Route: 065
     Dates: start: 2011
  2. LETROZOLE. [Suspect]
     Active Substance: LETROZOLE
     Indication: PRODUCT USED FOR UNKNOWN INDICATION
     Dosage: 2.5 MG, UNK
     Route: 065

REACTIONS (12)
  - Visual impairment [Unknown]
  - Fatigue [Unknown]
  - Bone loss [Unknown]
  - Dysstasia [Unknown]
  - Back disorder [Unknown]
  - Arthralgia [Unknown]
  - Weight increased [Unknown]
  - Back pain [Unknown]
  - Body height decreased [Unknown]
  - Gastric disorder [Unknown]
  - Osteoporosis [Unknown]
  - Myalgia [Unknown]
